FAERS Safety Report 5197353-6 (Version None)
Quarter: 2006Q4

REPORT INFORMATION
  Report Type: 
  Country: None (occurrence: None)
  Receive Date: 20061228
  Receipt Date: 20061215
  Transmission Date: 20070319
  Serious: Yes (Death)
  Sender: FDA-Public Use
  Company Number: WAES 0612GBR00096

PATIENT

DRUGS (4)
  1. CLINORIL [Suspect]
     Dosage: 800 MG PO
     Route: 048
  2. DEXAMETHASONE [Concomitant]
  3. EPIRUBICIN [Concomitant]
  4. GRANISETRON [Concomitant]

REACTIONS (2)
  - HAEMOPTYSIS [None]
  - RENAL IMPAIRMENT [None]
